FAERS Safety Report 7730209-0 (Version None)
Quarter: 2011Q3

REPORT INFORMATION
  Report Type: 
  Country: None (occurrence: None)
  Receive Date: 20110906
  Receipt Date: 20110901
  Transmission Date: 20111222
  Serious: Yes (Death)
  Sender: FDA-Public Use
  Company Number: PHHY2011CO78496

PATIENT
  Sex: Male

DRUGS (1)
  1. EXJADE [Suspect]
     Indication: IRON OVERLOAD
     Dosage: 250 MG, UNK
     Dates: start: 20110714

REACTIONS (4)
  - IRON OVERLOAD [None]
  - HEPATOMEGALY [None]
  - JAUNDICE [None]
  - SPLENOMEGALY [None]
